FAERS Safety Report 10565474 (Version 1)
Quarter: 2014Q4

REPORT INFORMATION
  Report Type: Spontaneous
  Country: US (occurrence: US)
  Receive Date: 20141105
  Receipt Date: 20141105
  Transmission Date: 20150529
  Serious: No
  Sender: FDA-Public Use
  Company Number: US-PFIZER INC-2014304038

PATIENT
  Age: 62 Year
  Sex: Male
  Weight: 102.04 kg

DRUGS (5)
  1. ADVIL [Suspect]
     Active Substance: IBUPROFEN
     Indication: HERNIA
  2. ADVIL [Suspect]
     Active Substance: IBUPROFEN
     Indication: BACK PAIN
  3. ADVIL [Suspect]
     Active Substance: IBUPROFEN
     Indication: MUSCULOSKELETAL PAIN
  4. ADVIL [Suspect]
     Active Substance: IBUPROFEN
     Indication: ARTHRALGIA
     Dosage: 600 MG, DAILY (200MG THREE PILLS A DAY)
     Dates: start: 2010
  5. TYLENOL WITH CODEINE [Suspect]
     Active Substance: ACETAMINOPHEN\CODEINE PHOSPHATE
     Indication: ARTHRALGIA
     Dosage: UNK

REACTIONS (1)
  - Drug ineffective [Unknown]
